FAERS Safety Report 5951206-1 (Version None)
Quarter: 2008Q4

REPORT INFORMATION
  Report Type: 
  Country: None (occurrence: None)
  Receive Date: 20081022
  Receipt Date: 20080808
  Transmission Date: 20090506
  Serious: No
  Sender: FDA-Public Use
  Company Number: ALL1-2008-02247

PATIENT
  Age: 15 Year
  Sex: Male
  Weight: 76.2 kg

DRUGS (3)
  1. VYVANSE [Suspect]
     Indication: ATTENTION DEFICIT/HYPERACTIVITY DISORDER
     Dosage: 30 MG, 1X/DAY:QD, ORAL 50 MG, 1X/DAY:QD, ORAL 70 MG, 1X/DAY:QD, ORAL
     Route: 048
     Dates: start: 20080101, end: 20080101
  2. VYVANSE [Suspect]
     Indication: ATTENTION DEFICIT/HYPERACTIVITY DISORDER
     Dosage: 30 MG, 1X/DAY:QD, ORAL 50 MG, 1X/DAY:QD, ORAL 70 MG, 1X/DAY:QD, ORAL
     Route: 048
     Dates: start: 20080601, end: 20080101
  3. VYVANSE [Suspect]
     Indication: ATTENTION DEFICIT/HYPERACTIVITY DISORDER
     Dosage: 30 MG, 1X/DAY:QD, ORAL 50 MG, 1X/DAY:QD, ORAL 70 MG, 1X/DAY:QD, ORAL
     Route: 048
     Dates: start: 20080101

REACTIONS (2)
  - IRRITABILITY [None]
  - OFF LABEL USE [None]
